FAERS Safety Report 7374690-8 (Version None)
Quarter: 2011Q1

REPORT INFORMATION
  Report Type: 
  Country: None (occurrence: None)
  Receive Date: 20110325
  Receipt Date: 20100722
  Transmission Date: 20110831
  Serious: No
  Sender: FDA-Public Use
  Company Number: US-MYLANLABS-2010S1013436

PATIENT
  Age: 72 Year
  Sex: Female

DRUGS (2)
  1. FENTANYL-100 [Suspect]
     Indication: BACK PAIN
     Dosage: CHANGED Q72H
     Route: 062
     Dates: start: 20100401
  2. LYRICA [Suspect]
     Indication: BACK PAIN
     Route: 048
     Dates: start: 20100401

REACTIONS (1)
  - VULVOVAGINAL DISCOMFORT [None]
